FAERS Safety Report 14561120 (Version 3)
Quarter: 2019Q1

REPORT INFORMATION
  Report Type: Spontaneous
  Country: US (occurrence: US)
  Receive Date: 20180222
  Receipt Date: 20190318
  Transmission Date: 20190417
  Serious: Yes (Life-Threatening, Hospitalization, Other)
  Sender: FDA-Public Use
  Company Number: US-AUROBINDO-AUR-APL-2018-006796

PATIENT

DRUGS (1)
  1. VANCOMYCIN INJECTION [Suspect]
     Active Substance: VANCOMYCIN
     Indication: SEPSIS
     Dosage: 15 MG/KG,EVERY 12 HOURS
     Route: 042

REACTIONS (4)
  - Kounis syndrome [Recovered/Resolved]
  - Acute coronary syndrome [Recovered/Resolved]
  - Respiration abnormal [Recovered/Resolved]
  - Pulse abnormal [Recovered/Resolved]
